FAERS Safety Report 8853997 (Version 2)
Quarter: 2013Q2

REPORT INFORMATION
  Report Type: Spontaneous
  Country: FR (occurrence: FR)
  Receive Date: 20121022
  Receipt Date: 20130422
  Transmission Date: 20140414
  Serious: Yes (Death, Other)
  Sender: FDA-Public Use
  Company Number: PHHY2012FR090991

PATIENT
  Age: 42 Year
  Sex: Female

DRUGS (4)
  1. EVEROLIMUS [Suspect]
     Indication: INSULINOMA
  2. DIAZOXIDE [Concomitant]
     Indication: HYPOGLYCAEMIA
  3. OCTREOTIDE [Concomitant]
  4. CHEMOTHERAPEUTICS [Suspect]

REACTIONS (10)
  - Pneumonitis [Fatal]
  - Hepatocellular injury [Unknown]
  - Cushing^s syndrome [Unknown]
  - Dyspnoea [Unknown]
  - Insulinoma [Unknown]
  - Malignant neoplasm progression [Unknown]
  - Oedema peripheral [Unknown]
  - Asthenia [Unknown]
  - Pulmonary toxicity [Unknown]
  - Drug ineffective [Unknown]
